FAERS Safety Report 16217208 (Version 1)
Quarter: 2019Q2

REPORT INFORMATION
  Report Type: Spontaneous
  Country: US (occurrence: US)
  Receive Date: 20190419
  Receipt Date: 20190419
  Transmission Date: 20190711
  Serious: No
  Sender: FDA-Public Use
  Company Number: US-ALLERGAN-1823245US

PATIENT
  Sex: Female

DRUGS (1)
  1. ZYMAR [Suspect]
     Active Substance: GATIFLOXACIN
     Indication: CATARACT OPERATION
     Dosage: UNK
     Route: 047

REACTIONS (6)
  - Ocular hyperaemia [Unknown]
  - Photophobia [Unknown]
  - Multiple allergies [Unknown]
  - Lacrimation increased [Unknown]
  - Swelling [Unknown]
  - Eye irritation [Unknown]
